FAERS Safety Report 12582064 (Version 1)
Quarter: 2016Q3

REPORT INFORMATION
  Report Type: Spontaneous
  Country: FR (occurrence: FR)
  Receive Date: 20160722
  Receipt Date: 20160722
  Transmission Date: 20161109
  Serious: Yes (Hospitalization)
  Sender: FDA-Public Use
  Company Number: FR-ACCORD-042469

PATIENT
  Age: 69 Year
  Sex: Male

DRUGS (6)
  1. FLUOROURACIL ACCORD [Suspect]
     Active Substance: FLUOROURACIL
     Indication: OESOPHAGEAL CANCER METASTATIC
     Dosage: 4800 MG IN DRIP
     Route: 040
     Dates: start: 20160329
  2. KARDEGIC [Concomitant]
     Active Substance: ASPIRIN LYSINE
     Dosage: 75 MG POWDER FOR ORAL SOLUTION IN SACHET
     Route: 048
     Dates: start: 2015
  3. UROREC [Concomitant]
     Active Substance: SILODOSIN
     Route: 048
     Dates: start: 2015
  4. LYRICA [Concomitant]
     Active Substance: PREGABALIN
     Dosage: 300MG
     Route: 048
     Dates: start: 2015
  5. LODOZ [Concomitant]
     Active Substance: BISOPROLOL FUMARATE\HYDROCHLOROTHIAZIDE
     Dosage: 10 MG/6.25 MG
     Route: 048
     Dates: start: 2015
  6. OXALIPLATIN TEVA [Suspect]
     Active Substance: OXALIPLATIN
     Indication: OESOPHAGEAL CANCER METASTATIC
     Dosage: 1 DOSE OF 170 MG,146 H EVERY 14 DAYS ON 01-MAR-2016, 15-MAR-2016 AND 29-MAR-2016.
     Route: 041
     Dates: start: 20160329

REACTIONS (1)
  - Ischaemic cerebral infarction [Recovering/Resolving]

NARRATIVE: CASE EVENT DATE: 20160407
